FAERS Safety Report 16264910 (Version 3)
Quarter: 2019Q3

REPORT INFORMATION
  Report Type: Report from Study
  Country: US (occurrence: US)
  Receive Date: 20190502
  Receipt Date: 20190910
  Transmission Date: 20191004
  Serious: No
  Sender: FDA-Public Use
  Company Number: US-SA-2019SA116210

PATIENT
  Age: 53 Year
  Sex: Female

DRUGS (2)
  1. ALIROCUMAB [Suspect]
     Active Substance: ALIROCUMAB
     Dosage: 150 MG
  2. REPATHA [Suspect]
     Active Substance: EVOLOCUMAB

REACTIONS (8)
  - Device defective [Unknown]
  - Injection site pain [Recovered/Resolved]
  - Product dose omission [Unknown]
  - Malaise [Unknown]
  - Blood cholesterol increased [Unknown]
  - Product dose omission [Unknown]
  - Abdominal pain upper [Unknown]
  - Injection site mass [Recovered/Resolved]

NARRATIVE: CASE EVENT DATE: 2019
